FAERS Safety Report 20857567 (Version 1)
Quarter: 2022Q2

REPORT INFORMATION
  Report Type: Report from Study
  Country: US (occurrence: US)
  Receive Date: 20220520
  Receipt Date: 20220520
  Transmission Date: 20220721
  Serious: Yes (Hospitalization)
  Sender: FDA-Public Use
  Company Number: US-ABBVIE-22K-163-4402086-00

PATIENT
  Age: 33 Year
  Sex: Male
  Weight: 70.8 kg

DRUGS (5)
  1. HUMIRA [Suspect]
     Active Substance: ADALIMUMAB
     Indication: Crohn^s disease
     Dosage: #1
     Route: 058
  2. APRISO [Concomitant]
     Active Substance: MESALAMINE
     Indication: Product used for unknown indication
     Route: 048
  3. CHOLECALCIFEROL [Concomitant]
     Active Substance: CHOLECALCIFEROL
     Indication: Product used for unknown indication
  4. PREDNISONE [Concomitant]
     Active Substance: PREDNISONE
     Indication: Product used for unknown indication
  5. PREDNISONE [Concomitant]
     Active Substance: PREDNISONE

REACTIONS (9)
  - Large intestinal ulcer [Unknown]
  - Colon dysplasia [Unknown]
  - Crohn^s disease [Unknown]
  - Cytomegalovirus infection [Unknown]
  - Colitis [Unknown]
  - Ulcer [Unknown]
  - Proctitis [Unknown]
  - Oedema mucosal [Unknown]
  - Mucosal ulceration [Unknown]

NARRATIVE: CASE EVENT DATE: 20190723
